FAERS Safety Report 5151539-5 (Version None)
Quarter: 2006Q4

REPORT INFORMATION
  Report Type: 
  Country: None (occurrence: None)
  Receive Date: 20061115
  Receipt Date: 20060811
  Transmission Date: 20070319
  Serious: Yes (Hospitalization)
  Sender: FDA-Public Use
  Company Number: NL-ELI_LILLY_AND_COMPANY-NL200608002948

PATIENT
  Age: 80 Year
  Sex: Female
  Weight: 40 kg

DRUGS (5)
  1. FORTEO [Suspect]
     Indication: OSTEOPOROSIS
     Dosage: 20 UNK, UNK
     Route: 058
     Dates: start: 20050606
  2. CALCIUM [Concomitant]
     Dates: start: 20040903
  3. VITAMIN D [Concomitant]
     Dates: start: 20040903
  4. TEGRETOL [Concomitant]
     Indication: RESTLESS LEGS SYNDROME
     Dosage: 100 MG, DAILY (1/D)
     Dates: start: 20061002
  5. TEGRETOL [Concomitant]
     Dosage: 200 MG, DAILY (1/D)
     Dates: start: 20060815, end: 20061002

REACTIONS (5)
  - DEHYDRATION [None]
  - FALL [None]
  - MALAISE [None]
  - RESTLESS LEGS SYNDROME [None]
  - URINARY TRACT INFECTION [None]
